FAERS Safety Report 18878504 (Version 1)
Quarter: 2021Q1

REPORT INFORMATION
  Report Type: Spontaneous
  Country: US (occurrence: US)
  Receive Date: 20210211
  Receipt Date: 20210211
  Transmission Date: 20210420
  Serious: No
  Sender: FDA-Public Use
  Company Number: None

PATIENT
  Age: 60 Year
  Sex: Male
  Weight: 121 kg

DRUGS (1)
  1. BARICITINIB (BARICITINIB 2MG TAB) [Suspect]
     Active Substance: BARICITINIB
     Indication: COVID-19 PNEUMONIA
     Route: 048
     Dates: start: 20201222, end: 20210104

REACTIONS (1)
  - Pulmonary embolism [None]

NARRATIVE: CASE EVENT DATE: 20210101
